FAERS Safety Report 4463422-9 (Version None)
Quarter: 2004Q3

REPORT INFORMATION
  Report Type: 
  Country: None (occurrence: None)
  Receive Date: 20040928
  Receipt Date: 20040914
  Transmission Date: 20050211
  Serious: Yes (Hospitalization)
  Sender: FDA-Public Use
  Company Number: 2004-BP-08149BP

PATIENT
  Age: 86 Year
  Sex: Male

DRUGS (7)
  1. FLOMAX [Suspect]
     Indication: BENIGN PROSTATIC HYPERPLASIA
     Dosage: 0.4 MG (0.4 MG, 1 OD), PO
     Route: 048
     Dates: start: 20040101
  2. ASPIRIN [Concomitant]
  3. ARICEPT (DONEPEXIL HYDROCHLORIDE) [Concomitant]
  4. LISINOPRIL [Concomitant]
  5. OMEPRAZOLE [Concomitant]
  6. ALLOPURINOL [Concomitant]
  7. METFORMIN HCL [Concomitant]

REACTIONS (4)
  - CHEST PAIN [None]
  - COLONIC POLYP [None]
  - GASTRIC NEOPLASM [None]
  - HEART RATE DECREASED [None]
